FAERS Safety Report 25235240 (Version 1)
Quarter: 2025Q2

REPORT INFORMATION
  Report Type: Other
  Country: JP (occurrence: JP)
  Receive Date: 20250424
  Receipt Date: 20250424
  Transmission Date: 20250717
  Serious: Yes (Life-Threatening, Hospitalization, Other)
  Sender: Apozeal Pharmaceuticals
  Company Number: JP-Apozeal Pharmaceuticals-2175527

PATIENT
  Age: 21 Year
  Sex: Female
  Weight: 68 kg

DRUGS (6)
  1. RISPERIDONE [Suspect]
     Active Substance: RISPERIDONE
     Indication: Schizophrenia
  2. DEXTROMETHORPHAN HYDROBROMIDE [Suspect]
     Active Substance: DEXTROMETHORPHAN HYDROBROMIDE
  3. BROTIZOLAM [Suspect]
     Active Substance: BROTIZOLAM
  4. DULOXETINE [Suspect]
     Active Substance: DULOXETINE
  5. ALPRAZOLAM [Suspect]
     Active Substance: ALPRAZOLAM
  6. TRIAZOLAM [Suspect]
     Active Substance: TRIAZOLAM

REACTIONS (11)
  - New onset refractory status epilepticus [Recovered/Resolved]
  - Intentional overdose [Unknown]
  - Drug interaction [Unknown]
  - Flushing [Recovered/Resolved]
  - Hyperthermia [Recovered/Resolved]
  - Tachycardia [Recovered/Resolved]
  - Mydriasis [Recovered/Resolved]
  - Cranial nerve decompression [Recovered/Resolved]
  - Mental status changes [Recovered/Resolved]
  - Shock [Recovered/Resolved]
  - Coma [Recovered/Resolved]
